FAERS Safety Report 6123574-1 (Version None)
Quarter: 2009Q1

REPORT INFORMATION
  Report Type: 
  Country: None (occurrence: None)
  Receive Date: 20090318
  Receipt Date: 20090318
  Transmission Date: 20090719
  Serious: Yes (Other)
  Sender: FDA-Public Use
  Company Number: None

PATIENT
  Age: 45 Year
  Sex: Female
  Weight: 47.6277 kg

DRUGS (1)
  1. RECLAST [Suspect]
     Indication: OSTEOPOROSIS
     Dosage: 5MG/100ML ONCE YEARLY IV
     Route: 042
     Dates: start: 20080829

REACTIONS (6)
  - ARTHRALGIA [None]
  - DENTAL CARIES [None]
  - DIZZINESS [None]
  - HAIR GROWTH ABNORMAL [None]
  - HOT FLUSH [None]
  - PARAESTHESIA [None]
